FAERS Safety Report 8907927 (Version 1)
Quarter: 2012Q4

REPORT INFORMATION
  Report Type: 
  Country: US (occurrence: US)
  Receive Date: 20121113
  Receipt Date: 20121113
  Transmission Date: 20130627
  Serious: No
  Sender: FDA-Public Use
  Company Number: US-AMGEN-USASP2012039227

PATIENT
  Age: 57 Year
  Sex: Female
  Weight: 64.85 kg

DRUGS (15)
  1. ENBREL [Suspect]
     Indication: PRODUCT USED FOR UNKNOWN INDICATION
     Dosage: UNK
  2. TORSEMIDE [Concomitant]
     Dosage: 20 mg, UNK
  3. AMLODIPINE [Concomitant]
     Dosage: 10 mg, UNK
  4. LEUCOVORIN CA [Concomitant]
     Dosage: 5 mg, UNK
  5. METHOTREXATE [Concomitant]
     Dosage: 2.5 mg, UNK
  6. PRAVASTATIN [Concomitant]
     Dosage: 10 mg, UNK
  7. METFORMIN [Concomitant]
     Dosage: 500 mg, UNK
  8. OMEPRAZOLE [Concomitant]
     Dosage: 10 mg, UNK
  9. FOLIC ACID [Concomitant]
     Dosage: 1 mg, UNK
  10. METOPROLOL [Concomitant]
     Dosage: 25 mg, UNK
  11. SPIRONOLACTON [Concomitant]
     Dosage: 25 mg, UNK
  12. LOSARTAN POTASSIUM [Concomitant]
     Dosage: 100 mg, UNK
  13. VITAMIN B 12 [Concomitant]
     Dosage: 1000 UNK, UNK
  14. ASPIRIN [Concomitant]
     Dosage: 81 mg, UNK
  15. LEVOTHYROXINE [Concomitant]
     Dosage: 100 mug, UNK

REACTIONS (8)
  - Cough [Unknown]
  - Bursitis [Unknown]
  - Mass [Unknown]
  - Ligament rupture [Unknown]
  - Sinusitis [Unknown]
  - Bronchitis [Unknown]
  - Herpes zoster [Unknown]
  - Anaemia [Unknown]
